FAERS Safety Report 11448914 (Version 1)
Quarter: 2015Q3

REPORT INFORMATION
  Report Type: Spontaneous
  Country: US (occurrence: US)
  Receive Date: 20150902
  Receipt Date: 20150902
  Transmission Date: 20151125
  Serious: Yes (Other)
  Sender: FDA-Public Use
  Company Number: US-PFIZER INC-2015288875

PATIENT
  Sex: Female

DRUGS (2)
  1. LYRICA [Suspect]
     Active Substance: PREGABALIN
     Dosage: 300MG TWICE A DAY ON FRIDAY, 300MG ONCE ON SATURDAY
  2. AMBIEN [Concomitant]
     Active Substance: ZOLPIDEM TARTRATE

REACTIONS (6)
  - Asthenia [Unknown]
  - Visual impairment [Unknown]
  - Crying [Unknown]
  - Suicidal ideation [Unknown]
  - Personality change [Unknown]
  - Eating disorder [Unknown]
